FAERS Safety Report 17274875 (Version 3)
Quarter: 2020Q1

REPORT INFORMATION
  Report Type: Spontaneous
  Country: JP (occurrence: JP)
  Receive Date: 20200116
  Receipt Date: 20200213
  Transmission Date: 20200409
  Serious: Yes (Hospitalization)
  Sender: FDA-Public Use
  Company Number: JP-ADVANZ PHARMA-202001000131

PATIENT

DRUGS (3)
  1. PILOCARPINE. [Suspect]
     Active Substance: PILOCARPINE
     Dosage: 7.5 MG, QD
  2. PILOCARPINE. [Suspect]
     Active Substance: PILOCARPINE
     Indication: DRY MOUTH
     Dosage: 15 MG, QD
  3. PILOCARPINE. [Suspect]
     Active Substance: PILOCARPINE
     Indication: SJOGREN^S SYNDROME
     Dosage: 15 MG, QD

REACTIONS (2)
  - Compression fracture [Unknown]
  - Hyperhidrosis [Recovered/Resolved]

NARRATIVE: CASE EVENT DATE: 20191127
